FAERS Safety Report 6092038-6 (Version None)
Quarter: 2009Q1

REPORT INFORMATION
  Report Type: 
  Country: None (occurrence: None)
  Receive Date: 20090225
  Receipt Date: 20090218
  Transmission Date: 20090719
  Serious: Yes (Hospitalization)
  Sender: FDA-Public Use
  Company Number: FR-BIOGENIDEC-2009BI005255

PATIENT
  Age: 12 Year
  Sex: Female

DRUGS (4)
  1. AVONEX [Suspect]
     Indication: NEUROMYELITIS OPTICA
     Route: 030
     Dates: start: 20000701, end: 20031001
  2. AVONEX [Suspect]
     Route: 030
     Dates: start: 20031001
  3. IMUREL [Concomitant]
     Indication: NEUROMYELITIS OPTICA
     Dates: start: 19980101, end: 20090101
  4. IMUREL [Concomitant]
     Dates: start: 20080731, end: 20080825

REACTIONS (2)
  - JUVENILE ARTHRITIS [None]
  - RASH [None]
